FAERS Safety Report 5959616-3 (Version None)
Quarter: 2008Q4

REPORT INFORMATION
  Report Type: 
  Country: None (occurrence: None)
  Receive Date: 20081106
  Receipt Date: 20080414
  Transmission Date: 20090506
  Serious: Yes (Death)
  Sender: FDA-Public Use
  Company Number: US200804003770

PATIENT
  Sex: Male

DRUGS (4)
  1. PROZAC [Suspect]
  2. NORTRIPTYLINE HCL [Concomitant]
  3. CLOMIPRAMINE HCL [Concomitant]
  4. LAMICTAL [Concomitant]

REACTIONS (2)
  - BIPOLAR DISORDER [None]
  - OVERDOSE [None]
